FAERS Safety Report 6391246-4 (Version None)
Quarter: 2009Q4

REPORT INFORMATION
  Report Type: 
  Country: None (occurrence: None)
  Receive Date: 20091007
  Receipt Date: 20090923
  Transmission Date: 20100525
  Serious: Yes (Death, Hospitalization)
  Sender: FDA-Public Use
  Company Number: PL-CELGENEUS-129-C5013-07120235

PATIENT
  Sex: Male
  Weight: 48 kg

DRUGS (24)
  1. CC-5013\PLACEBO [Suspect]
     Indication: MULTIPLE MYELOMA
     Route: 048
     Dates: start: 20071130, end: 20071211
  2. MELPHALAN [Suspect]
     Indication: MULTIPLE MYELOMA
     Route: 048
     Dates: start: 20071130, end: 20071203
  3. PREDNISONE TAB [Suspect]
     Indication: MULTIPLE MYELOMA
     Route: 048
     Dates: start: 20071130, end: 20071203
  4. CLODRONATE DISODIUM [Concomitant]
     Indication: OSTEOPOROSIS
     Route: 051
     Dates: start: 20071105, end: 20071105
  5. CLODRONATE DISODIUM [Concomitant]
     Route: 051
     Dates: start: 20071130, end: 20071130
  6. POTASSIUM CHLORIDE [Concomitant]
     Route: 048
     Dates: start: 20071030, end: 20071107
  7. POTASSIUM CHLORIDE [Concomitant]
     Route: 048
     Dates: start: 20071218, end: 20071227
  8. DICLOFENAC SODIUM [Concomitant]
     Indication: BONE PAIN
     Route: 048
     Dates: start: 20071031, end: 20071105
  9. OMEPRAZOLE [Concomitant]
     Route: 048
     Dates: start: 20071031, end: 20071105
  10. OMEPRAZOLE [Concomitant]
     Route: 048
     Dates: start: 20071129, end: 20071228
  11. TRAMADOL HCL [Concomitant]
     Indication: BONE PAIN
     Route: 058
     Dates: start: 20071031, end: 20071105
  12. TRAMADOL HCL [Concomitant]
     Route: 048
     Dates: start: 20071105
  13. ACETAMINOPHEN [Concomitant]
     Indication: BONE PAIN
     Route: 048
     Dates: start: 20071109, end: 20071208
  14. ENALAPRIL MALEATE [Concomitant]
     Indication: HYPERTENSION
     Route: 065
     Dates: start: 20071129
  15. NADROPARINE [Concomitant]
     Indication: ANTICOAGULANT THERAPY
     Route: 058
     Dates: start: 20070130, end: 20080102
  16. AMOXICILLIN WITH CLAVULANIC ACID [Concomitant]
     Route: 051
     Dates: start: 20071203, end: 20071204
  17. ACETYLSALICYLIC ACID [Concomitant]
     Indication: ANTICOAGULANT THERAPY
     Route: 048
     Dates: start: 20071207, end: 20071212
  18. ENARENAL [Concomitant]
     Indication: DRUG USE FOR UNKNOWN INDICATION
     Route: 065
  19. BONEFOS [Concomitant]
     Indication: DRUG USE FOR UNKNOWN INDICATION
     Route: 065
     Dates: start: 20071130
  20. FRAXIPARINE [Concomitant]
     Indication: DRUG USE FOR UNKNOWN INDICATION
     Route: 065
  21. AMOXICLAVE [Concomitant]
     Indication: DRUG USE FOR UNKNOWN INDICATION
     Route: 065
     Dates: start: 20071203, end: 20071204
  22. PROXACIN [Concomitant]
     Indication: DRUG USE FOR UNKNOWN INDICATION
     Route: 065
     Dates: start: 20071204, end: 20071205
  23. SULPERAZONE [Concomitant]
     Indication: DRUG USE FOR UNKNOWN INDICATION
     Route: 065
     Dates: start: 20071205, end: 20071211
  24. BISEPTOL [Concomitant]
     Indication: DRUG USE FOR UNKNOWN INDICATION
     Route: 065
     Dates: start: 20071221

REACTIONS (3)
  - GENERAL PHYSICAL HEALTH DETERIORATION [None]
  - PNEUMONIA [None]
  - RENAL FAILURE ACUTE [None]
